FAERS Safety Report 5325196-9 (Version None)
Quarter: 2007Q2

REPORT INFORMATION
  Report Type: 
  Country: None (occurrence: None)
  Receive Date: 20070515
  Receipt Date: 20070508
  Transmission Date: 20071010
  Serious: Yes (Hospitalization)
  Sender: FDA-Public Use
  Company Number: B0470577A

PATIENT
  Age: 63 Year
  Sex: Female

DRUGS (1)
  1. AVANDAMET [Suspect]
     Dates: start: 20060530

REACTIONS (2)
  - PANCREATIC CYST [None]
  - PANCREATITIS [None]
